FAERS Safety Report 25526216 (Version 2)
Quarter: 2025Q3

REPORT INFORMATION
  Report Type: Spontaneous
  Country: GB (occurrence: GB)
  Receive Date: 20250707
  Receipt Date: 20250829
  Transmission Date: 20251021
  Serious: Yes (Other)
  Sender: MYLAN
  Company Number: GB-MHRA-TPP24532639C7045296YC1751440517916

PATIENT
  Age: 56 Year
  Sex: Female
  Weight: 85 kg

DRUGS (4)
  1. GABAPENTIN [Suspect]
     Active Substance: GABAPENTIN
     Indication: Ill-defined disorder
     Dosage: 900 MILLIGRAM, PM (TAKE THREE (300MG) AT NIGHT)
     Dates: start: 20250127, end: 20250701
  2. CLONAZEPAM [Concomitant]
     Active Substance: CLONAZEPAM
     Indication: Ill-defined disorder
     Dosage: UNK, PM (1-2 TABLETS AT NIGHT)
     Dates: start: 20250701
  3. BACLOFEN [Concomitant]
     Active Substance: BACLOFEN
     Indication: Ill-defined disorder
  4. SERTRALINE [Concomitant]
     Active Substance: SERTRALINE HYDROCHLORIDE
     Indication: Ill-defined disorder
     Dosage: 1 DOSAGE FORM, QD (TAKE ONE DAILY)
     Dates: start: 20250127

REACTIONS (2)
  - Pruritus [Unknown]
  - Drug intolerance [Recovering/Resolving]
